FAERS Safety Report 25565962 (Version 1)
Quarter: 2025Q3

REPORT INFORMATION
  Report Type: Spontaneous
  Country: EU (occurrence: EU)
  Receive Date: 20250716
  Receipt Date: 20250716
  Transmission Date: 20251021
  Serious: Yes (Other)
  Sender: JOHNSON AND JOHNSON
  Company Number: EU-JNJFOC-20250718574

PATIENT
  Age: 61 Year
  Sex: Male

DRUGS (2)
  1. USTEKINUMAB [Suspect]
     Active Substance: USTEKINUMAB
     Indication: Product used for unknown indication
     Route: 058
  2. AZATHIOPRINE [Suspect]
     Active Substance: AZATHIOPRINE
     Indication: Product used for unknown indication
     Route: 065

REACTIONS (8)
  - Primary immunodeficiency syndrome [Unknown]
  - Immune system disorder [Unknown]
  - Dermatitis acneiform [Unknown]
  - Visual acuity reduced [Unknown]
  - Autoinflammatory disease [Unknown]
  - Gene mutation [Unknown]
  - Rash [Unknown]
  - Pruritus [Unknown]
